FAERS Safety Report 7313055-1 (Version None)
Quarter: 2011Q1

REPORT INFORMATION
  Report Type: 
  Country: None (occurrence: None)
  Receive Date: 20110225
  Receipt Date: 20110218
  Transmission Date: 20110831
  Serious: Yes (Hospitalization)
  Sender: FDA-Public Use
  Company Number: 2008BI024849

PATIENT
  Age: 33 Year
  Sex: Female

DRUGS (4)
  1. CLARITIN [Concomitant]
     Indication: PREMEDICATION
     Dates: start: 20080919, end: 20080919
  2. TYLENOL [Concomitant]
     Indication: PREMEDICATION
     Dates: start: 20080919, end: 20080919
  3. TYSABRI [Suspect]
     Indication: MULTIPLE SCLEROSIS
     Route: 042
     Dates: start: 20070928, end: 20090122
  4. AVONEX [Concomitant]
     Indication: MULTIPLE SCLEROSIS
     Route: 030

REACTIONS (4)
  - FEELING COLD [None]
  - PRURITUS [None]
  - URTICARIA [None]
  - ERYTHEMA [None]
